FAERS Safety Report 10929728 (Version 1)
Quarter: 2015Q1

REPORT INFORMATION
  Report Type: Spontaneous
  Country: AU (occurrence: AU)
  Receive Date: 20150319
  Receipt Date: 20150319
  Transmission Date: 20150721
  Serious: Yes (Hospitalization)
  Sender: FDA-Public Use
  Company Number: AU-AMGEN-AUSSP2015024262

PATIENT
  Age: 21 Year
  Sex: Female

DRUGS (10)
  1. SENSIPAR [Suspect]
     Active Substance: CINACALCET HYDROCHLORIDE
     Indication: PRODUCT USED FOR UNKNOWN INDICATION
     Dosage: 30 MG, QD
     Route: 048
  2. METOPROLOL [Concomitant]
     Active Substance: METOPROLOL
  3. DARBEPOETIN ALFA [Concomitant]
     Active Substance: DARBEPOETIN ALFA
  4. VITAMIN B [Concomitant]
     Active Substance: VITAMIN B
  5. ASCORBIC ACID. [Concomitant]
     Active Substance: ASCORBIC ACID
  6. MUPIROCIN. [Concomitant]
     Active Substance: MUPIROCIN
  7. CALCIUM-SANDOZ                     /00751528/ [Concomitant]
  8. AMLODIPINE [Concomitant]
     Active Substance: AMLODIPINE BESYLATE
  9. FOLIC ACID. [Concomitant]
     Active Substance: FOLIC ACID
  10. PRAZOSIN HYDROCHLORIDE. [Concomitant]
     Active Substance: PRAZOSIN HYDROCHLORIDE

REACTIONS (4)
  - Thrombocytopenia [Recovered/Resolved]
  - Vomiting [Recovered/Resolved]
  - Bone marrow failure [Recovered/Resolved]
  - Nausea [Recovered/Resolved]

NARRATIVE: CASE EVENT DATE: 201408
